FAERS Safety Report 8132718-1 (Version None)
Quarter: 2012Q1

REPORT INFORMATION
  Report Type: 
  Country: None (occurrence: None)
  Receive Date: 20120213
  Receipt Date: 20120208
  Transmission Date: 20120608
  Serious: Yes (Other)
  Sender: FDA-Public Use
  Company Number: US-PFIZER INC-2012035036

PATIENT
  Sex: Female
  Weight: 61.224 kg

DRUGS (8)
  1. NEURONTIN [Suspect]
     Indication: NERVE COMPRESSION
     Dosage: 200 MG, 1X/DAY
     Route: 048
     Dates: start: 20090101
  2. WELLBUTRIN [Concomitant]
     Dosage: 300 MG, 1X/DAY
  3. ACETAMINOPHEN [Concomitant]
     Dosage: UNK
  4. METFORMIN [Concomitant]
     Indication: DIABETES MELLITUS
     Dosage: 500 MG, 2X/DAY
  5. CYMBALTA [Concomitant]
     Dosage: 90 MG, 1X/DAY
  6. NEURONTIN [Suspect]
     Dosage: UNK
     Route: 048
     Dates: end: 20100101
  7. VICODIN [Concomitant]
     Dosage: UNK
  8. XANAX [Concomitant]
     Indication: ANXIETY
     Dosage: UNK

REACTIONS (1)
  - BREAST CANCER [None]
